FAERS Safety Report 24062068 (Version 1)
Quarter: 2024Q3

REPORT INFORMATION
  Report Type: Spontaneous
  Country: US (occurrence: US)
  Receive Date: 20240708
  Receipt Date: 20240708
  Transmission Date: 20241017
  Serious: Yes (Other)
  Sender: MYLAN
  Company Number: US-MYLANLABS-2024M1062731

PATIENT
  Age: 12 Year
  Sex: Female

DRUGS (3)
  1. TADALAFIL [Suspect]
     Active Substance: TADALAFIL
     Indication: Right-to-left cardiac shunt
     Dosage: UNK
     Route: 065
  2. SELEXIPAG [Suspect]
     Active Substance: SELEXIPAG
     Indication: Right-to-left cardiac shunt
     Dosage: 1100 MICROGRAM, BID
     Route: 065
  3. SELEXIPAG [Suspect]
     Active Substance: SELEXIPAG
     Dosage: UNK; DOSE INCREASED AND THEN DISCONTINUED
     Route: 065

REACTIONS (2)
  - Drug ineffective [Unknown]
  - Off label use [Unknown]
